FAERS Safety Report 4942917-5 (Version None)
Quarter: 2006Q1

REPORT INFORMATION
  Report Type: 
  Country: None (occurrence: None)
  Receive Date: 20060314
  Receipt Date: 20060221
  Transmission Date: 20060701
  Serious: Yes (Hospitalization)
  Sender: FDA-Public Use
  Company Number: CA-AMGEN-US169748

PATIENT
  Sex: Female

DRUGS (10)
  1. DARBEPOETIN ALFA [Suspect]
     Indication: ANAEMIA OF MALIGNANT DISEASE
     Route: 058
     Dates: start: 20050921, end: 20060215
  2. TAXOL [Concomitant]
     Dates: start: 20051102, end: 20060104
  3. DOXORUBICIN HCL [Concomitant]
     Dates: start: 20050810, end: 20051012
  4. TYLENOL (CAPLET) [Concomitant]
  5. LEVAQUIN [Concomitant]
  6. TRAZODONE [Concomitant]
     Route: 048
  7. LASIX [Concomitant]
     Dates: start: 20060117
  8. ARIMIDEX [Concomitant]
     Route: 048
  9. ATIVAN [Concomitant]
  10. RADIATION THERAPY [Concomitant]
     Dates: start: 20060215

REACTIONS (3)
  - CARDIAC FAILURE CONGESTIVE [None]
  - CORONARY ARTERY DISEASE [None]
  - MYOCARDIAL INFARCTION [None]
